FAERS Safety Report 10058478 (Version 4)
Quarter: 2014Q2

REPORT INFORMATION
  Report Type: Report from Study
  Country: NL (occurrence: NL)
  Receive Date: 20140404
  Receipt Date: 20140417
  Transmission Date: 20141212
  Serious: Yes (Hospitalization)
  Sender: FDA-Public Use
  Company Number: PHHY2013NL027276

PATIENT
  Age: 66 Year
  Sex: Male

DRUGS (17)
  1. ZOMETA [Suspect]
     Indication: PROSTATE CANCER METASTATIC
     Dosage: 4 MG PER 100 ML ONCE PER 42 DAYS
     Route: 042
  2. ZOMETA [Suspect]
     Dosage: 4 MG PER 100 ML ONCE PER 42 DAYS
     Route: 042
     Dates: start: 20120823
  3. ZOMETA [Suspect]
     Dosage: 4 MG PER 100 ML ONCE PER 42 DAYS
     Route: 042
     Dates: start: 20130204
  4. ZOMETA [Suspect]
     Dosage: 4 MG PER 100 ML ONCE PER 42 DAYS
     Route: 042
     Dates: start: 20130318
  5. ZOMETA [Suspect]
     Dosage: 4 MG PER 100 ML ONCE PER 42 DAYS
     Route: 042
     Dates: start: 20130902
  6. ZOMETA [Suspect]
     Dosage: 4 MG PER 100 ML ONCE PER 42 DAYS
     Route: 042
     Dates: start: 20131014
  7. ZOMETA [Suspect]
     Dosage: 4 MG PER 100 ML ONCE PER 42 DAYS
     Route: 042
     Dates: start: 20140217
  8. ZOMETA [Suspect]
     Dosage: 4 MG PER 100 ML ONCE PER 42 DAYS
     Route: 042
     Dates: start: 20140331
  9. OMEPRAZOLE [Concomitant]
     Dosage: 20 UKN, 1X
  10. PARACETAMOL [Concomitant]
     Dosage: 1000 UKN, 4X
  11. IBUPROFEN [Concomitant]
     Dosage: 600 UKN, 3X
  12. LYRICA [Concomitant]
     Dosage: 75 UKN, 6X
  13. ONDANSETRON [Concomitant]
     Dosage: 4 UKN, 2X
  14. OXYNORM [Concomitant]
     Dosage: 10 UKN, 1X
  15. DEXAMETHASONE [Concomitant]
     Dosage: 1 UKN, 1X
  16. NORTRILEN [Concomitant]
     Dosage: 10 UKN, 3X
  17. FENTANYL [Concomitant]
     Dosage: 75 UKN

REACTIONS (4)
  - Inflammation [Not Recovered/Not Resolved]
  - Limb discomfort [Not Recovered/Not Resolved]
  - Wound [Not Recovered/Not Resolved]
  - Pain in extremity [Not Recovered/Not Resolved]
